FAERS Safety Report 10285363 (Version 1)
Quarter: 2014Q3

REPORT INFORMATION
  Report Type: Spontaneous
  Country: KR (occurrence: KR)
  Receive Date: 20140708
  Receipt Date: 20140708
  Transmission Date: 20150326
  Serious: Yes (Death, Other)
  Sender: FDA-Public Use
  Company Number: PHHY2014KR083360

PATIENT
  Age: 10 Year
  Sex: Male

DRUGS (11)
  1. CICLOSPORIN [Suspect]
     Active Substance: CYCLOSPORINE
     Indication: PROPHYLAXIS AGAINST GRAFT VERSUS HOST DISEASE
  2. ANTIFUNGAL DRUGS [Concomitant]
     Active Substance: UNSPECIFIED INGREDIENT
  3. BUSULPHAN [Concomitant]
     Active Substance: BUSULFAN
     Dosage: 130 MG/M2, QD
  4. CYTARABINE. [Concomitant]
     Active Substance: CYTARABINE
  5. ACYCLOVIR. [Concomitant]
     Active Substance: ACYCLOVIR
     Dosage: 5 MG/KG, QID
     Route: 048
  6. FLUCONAZOLE. [Concomitant]
     Active Substance: FLUCONAZOLE
     Dosage: 3 MG/KG, QD
     Route: 048
  7. CYCLOPHOSPHAMIDE. [Concomitant]
     Active Substance: CYCLOPHOSPHAMIDE
     Dosage: 60 MG/KG, QD
  8. MICAFUNGIN [Concomitant]
     Active Substance: MICAFUNGIN
     Dosage: 1 MG/KG, QD
     Route: 051
  9. SULFAMETHOXAZOLE AND TRIMETHOPRIM [Concomitant]
     Active Substance: SULFAMETHOXAZOLE\TRIMETHOPRIM
     Dosage: 150 MG/M2, QD
  10. ETOPOSIDE. [Concomitant]
     Active Substance: ETOPOSIDE
     Dosage: 30 MG/KG, QD
  11. FLUDARABINE [Concomitant]
     Active Substance: FLUDARABINE PHOSPHATE
     Dosage: 40 MG/M2, QD

REACTIONS (5)
  - Graft versus host disease in skin [Recovered/Resolved]
  - Sepsis [Fatal]
  - Lymphadenopathy [Recovered/Resolved]
  - Pyrexia [Recovered/Resolved]
  - Acute lymphocytic leukaemia recurrent [Unknown]
